FAERS Safety Report 8395992-2 (Version None)
Quarter: 2012Q2

REPORT INFORMATION
  Report Type: 
  Country: None (occurrence: None)
  Receive Date: 20120530
  Receipt Date: 20120515
  Transmission Date: 20120825
  Serious: Yes (Disabling)
  Sender: FDA-Public Use
  Company Number: GB-WATSON-2012-09128

PATIENT
  Age: 63 Year
  Sex: Male

DRUGS (7)
  1. TOPIRAMATE [Suspect]
     Indication: PRODUCT USED FOR UNKNOWN INDICATION
     Dosage: 100 MG, BID DOSE GRADUALLY REDUCED DOWN TO 25MG TWICE A DAY AND DISCONTINUED.
     Route: 048
     Dates: start: 20120227, end: 20120330
  2. LIDOCAINE [Concomitant]
     Indication: PRODUCT USED FOR UNKNOWN INDICATION
     Dosage: 15 ML, Q1H (INITIALLY 15ML/HR, INCREASED TO 30ML/HR)
     Route: 042
  3. LAMOTRGINE [Concomitant]
     Indication: PRODUCT USED FOR UNKNOWN INDICATION
     Dosage: 250 MG, BID - GRADUALLY DECREASE LAMOTRIGINE
     Route: 065
  4. TAMSULOSIN HCL [Concomitant]
     Indication: PRODUCT USED FOR UNKNOWN INDICATION
     Dosage: UNKNOWN
     Route: 065
  5. ADALAT CC [Concomitant]
     Indication: PRODUCT USED FOR UNKNOWN INDICATION
     Dosage: UNKNOWN
     Route: 065
  6. ATORVASTATIN CALCIUM [Concomitant]
     Indication: PRODUCT USED FOR UNKNOWN INDICATION
     Dosage: UNKNOWN
     Route: 065
  7. RANITIDINE [Concomitant]
     Indication: PRODUCT USED FOR UNKNOWN INDICATION
     Dosage: UNKNOWN
     Route: 065

REACTIONS (5)
  - DEPRESSED MOOD [None]
  - LETHARGY [None]
  - AGGRESSION [None]
  - MEMORY IMPAIRMENT [None]
  - NIGHT SWEATS [None]
